FAERS Safety Report 6939914-7 (Version None)
Quarter: 2010Q3

REPORT INFORMATION
  Report Type: 
  Country: None (occurrence: None)
  Receive Date: 20100825
  Receipt Date: 20100812
  Transmission Date: 20110219
  Serious: Yes (Life-Threatening, Hospitalization, Other)
  Sender: FDA-Public Use
  Company Number: US-PFIZER INC-2010098885

PATIENT
  Sex: Female
  Weight: 62.585 kg

DRUGS (2)
  1. GABAPENTIN [Suspect]
     Indication: NEUROPATHY PERIPHERAL
     Dosage: 200 MG, 3X/DAY
     Route: 048
     Dates: start: 20080101, end: 20100201
  2. VICODIN [Concomitant]
     Indication: PAIN
     Dosage: UNK

REACTIONS (6)
  - ANXIETY [None]
  - BLOOD CHOLESTEROL ABNORMAL [None]
  - BLOOD PRESSURE ABNORMAL [None]
  - INSOMNIA [None]
  - NON-HODGKIN'S LYMPHOMA [None]
  - THYROID DISORDER [None]
